FAERS Safety Report 24257220 (Version 1)
Quarter: 2024Q3

REPORT INFORMATION
  Report Type: Report from Study
  Country: CA (occurrence: CA)
  Receive Date: 20240828
  Receipt Date: 20240828
  Transmission Date: 20241016
  Serious: Yes (Other)
  Sender: NOVARTIS
  Company Number: CA-002147023-NVSC2024CA172481

PATIENT
  Age: 74 Year
  Sex: Male

DRUGS (1)
  1. LEQVIO [Suspect]
     Active Substance: INCLISIRAN SODIUM
     Indication: Arteriosclerosis
     Dosage: 284 MG, (BASELINE, 3 MONTHS AND EVERY 6 MONTHS THEREAFTER)
     Route: 058
     Dates: start: 20240806

REACTIONS (7)
  - Diabetes mellitus [Unknown]
  - Renal failure [Unknown]
  - Blood glucose increased [Unknown]
  - Chest discomfort [Recovered/Resolved]
  - Vision blurred [Recovered/Resolved]
  - Cardiac disorder [Unknown]
  - Rash pruritic [Not Recovered/Not Resolved]

NARRATIVE: CASE EVENT DATE: 20240822
